FAERS Safety Report 8836989 (Version 1)
Quarter: 2012Q4

REPORT INFORMATION
  Report Type: 
  Country: US (occurrence: None)
  Receive Date: 20121011
  Receipt Date: 20121011
  Transmission Date: 20130627
  Serious: Yes (Hospitalization)
  Sender: FDA-Public Use
  Company Number: None

PATIENT
  Sex: Female
  Weight: 43.4 kg

DRUGS (6)
  1. CYCLOPHOSPHAMIDE [Suspect]
  2. CYTARABINE [Suspect]
  3. MERCAPTOPURINE [Suspect]
  4. METHOTREXATE [Suspect]
  5. PEG-L ASPARAGINASE [Suspect]
  6. VINCRISTINE SULFATE [Suspect]

REACTIONS (6)
  - Pyrexia [None]
  - Tachycardia [None]
  - Hypotension [None]
  - Neutropenia [None]
  - White blood cell count decreased [None]
  - Septic shock [None]
